FAERS Safety Report 10951823 (Version 3)
Quarter: 2015Q2

REPORT INFORMATION
  Report Type: Spontaneous
  Country: US (occurrence: US)
  Receive Date: 20150325
  Receipt Date: 20150615
  Transmission Date: 20150821
  Serious: Yes (Hospitalization, Other)
  Sender: FDA-Public Use
  Company Number: US-AMGEN-USASP2015026043

PATIENT
  Age: 75 Year
  Sex: Male
  Weight: 76.64 kg

DRUGS (9)
  1. LEVOFLOXACIN. [Concomitant]
     Active Substance: LEVOFLOXACIN
     Dosage: 500 MG, UNK
     Route: 048
     Dates: start: 20140821
  2. DEFERASIROX [Concomitant]
     Active Substance: DEFERASIROX
     Dosage: 5 MG, QD
  3. SPIRONOLACTONE. [Concomitant]
     Active Substance: SPIRONOLACTONE
     Dosage: 25 MG, QD
     Route: 048
     Dates: start: 20130318
  4. LANTUS [Concomitant]
     Active Substance: INSULIN GLARGINE
     Dosage: 3 ML, QD
     Dates: start: 20130415
  5. COREG [Concomitant]
     Active Substance: CARVEDILOL
     Dosage: 6.25 MG, QD
     Route: 048
     Dates: start: 20120828
  6. DANOCRINE [Concomitant]
     Active Substance: DANAZOL
  7. ASPIRIN                            /00002701/ [Concomitant]
     Active Substance: ASPIRIN
     Dosage: 81 MG, QD
     Route: 048
     Dates: start: 20120828
  8. ARANESP [Suspect]
     Active Substance: DARBEPOETIN ALFA
     Indication: PRODUCT USED FOR UNKNOWN INDICATION
     Dosage: 150 MG, QMO
     Route: 030
  9. VITAMIN D                          /00107901/ [Concomitant]
     Active Substance: ERGOCALCIFEROL
     Dosage: 5000 UNIT, QD
     Route: 048
     Dates: start: 20120828

REACTIONS (11)
  - Stasis dermatitis [Unknown]
  - Productive cough [Unknown]
  - Contusion [Unknown]
  - Drug ineffective [Unknown]
  - Weight decreased [Unknown]
  - Papule [Unknown]
  - Acute kidney injury [Unknown]
  - Dyspnoea [Unknown]
  - Pneumocystis jirovecii pneumonia [Unknown]
  - Incision site pain [Unknown]
  - Hypoaesthesia [Unknown]
